FAERS Safety Report 5008897-1 (Version None)
Quarter: 2006Q2

REPORT INFORMATION
  Report Type: 
  Country: None (occurrence: None)
  Receive Date: 20060518
  Receipt Date: 20060510
  Transmission Date: 20061013
  Serious: Yes (Hospitalization, Other)
  Sender: FDA-Public Use
  Company Number: 2006062084

PATIENT
  Sex: Female

DRUGS (1)
  1. BENADRYL [Suspect]
     Indication: URTICARIA
     Dosage: ONE DOSE ONCE, ORAL
     Route: 048
     Dates: start: 19700101, end: 19700101

REACTIONS (2)
  - DYSPNOEA [None]
  - THROAT TIGHTNESS [None]
